FAERS Safety Report 4394133-6 (Version None)
Quarter: 2004Q3

REPORT INFORMATION
  Report Type: 
  Country: None (occurrence: None)
  Receive Date: 20040712
  Receipt Date: 20040115
  Transmission Date: 20050211
  Serious: Yes (Hospitalization, Disabling)
  Sender: FDA-Public Use
  Company Number: PHBS2004JP00947

PATIENT
  Age: 64 Year
  Sex: Male
  Weight: 54 kg

DRUGS (7)
  1. GLEEVEC [Suspect]
     Indication: GASTROINTESTINAL STROMAL TUMOUR
     Dosage: 300 MG, QD
     Route: 048
     Dates: start: 20031227, end: 20040330
  2. AMARYL [Concomitant]
     Indication: DIABETES MELLITUS
  3. BASEN [Concomitant]
     Indication: DIABETES MELLITUS
  4. BIOFERMIN [Concomitant]
  5. ISALON [Concomitant]
     Indication: ABDOMINAL PAIN UPPER
  6. STOMILASE [Concomitant]
     Indication: ABDOMINAL PAIN UPPER
  7. BUFFERIN [Concomitant]
     Indication: ABDOMINAL PAIN UPPER

REACTIONS (5)
  - CEREBELLAR INFARCTION [None]
  - DIZZINESS [None]
  - HEADACHE [None]
  - RASH [None]
  - RASH GENERALISED [None]
